FAERS Safety Report 6493753-2 (Version None)
Quarter: 2009Q4

REPORT INFORMATION
  Report Type: 
  Country: None (occurrence: None)
  Receive Date: 20091214
  Receipt Date: 20081120
  Transmission Date: 20100525
  Serious: No
  Sender: FDA-Public Use
  Company Number: US-BRISTOL-MYERS SQUIBB COMPANY-14341044

PATIENT
  Age: 50 Year
  Sex: Female

DRUGS (7)
  1. ABILIFY [Suspect]
     Indication: MAJOR DEPRESSION
     Route: 048
  2. EFFEXOR XR [Concomitant]
  3. WELLBUTRIN XL [Concomitant]
  4. TRANXENE [Concomitant]
  5. TOPAMAX [Concomitant]
  6. DARVOCET [Concomitant]
  7. LISINOPRIL [Concomitant]

REACTIONS (2)
  - AKATHISIA [None]
  - WITHDRAWAL SYNDROME [None]
